FAERS Safety Report 10061004 (Version 1)
Quarter: 2014Q2

REPORT INFORMATION
  Report Type: Spontaneous
  Country: US (occurrence: US)
  Receive Date: 20140405
  Receipt Date: 20140405
  Transmission Date: 20141212
  Serious: Yes (Death, Hospitalization)
  Sender: FDA-Public Use
  Company Number: 2014SP001658

PATIENT
  Age: 58 Year
  Sex: Female
  Weight: 107.9 kg

DRUGS (10)
  1. CYTARABINE [Suspect]
     Indication: ACUTE MYELOID LEUKAEMIA
     Route: 042
     Dates: start: 20131214, end: 20131220
  2. DAUNORUBICIN [Suspect]
     Indication: ACUTE MYELOID LEUKAEMIA
     Route: 040
     Dates: start: 20131214, end: 20131216
  3. ALLOPURINOL [Concomitant]
     Indication: PROPHYLAXIS
     Dates: start: 20131205
  4. GABAPENTIN [Concomitant]
     Indication: DIABETIC NEUROPATHY
  5. INSULIN GLARGINE [Concomitant]
     Indication: TYPE 2 DIABETES MELLITUS
  6. INSULIN [Concomitant]
     Indication: TYPE 2 DIABETES MELLITUS
  7. PANTOPRAZOLE [Concomitant]
     Indication: PROPHYLAXIS
     Dates: start: 20140220
  8. PREDNISONE [Concomitant]
     Indication: PROPHYLAXIS
     Dates: start: 20140304, end: 20140308
  9. ACYCLOVIR [Concomitant]
     Indication: PROPHYLAXIS
     Dates: start: 20131204
  10. TRIMETHOPRIM SULFAMETHOXAZOLE [Concomitant]
     Indication: PROPHYLAXIS
     Dates: start: 20140214

REACTIONS (6)
  - Disease progression [Fatal]
  - Septic shock [Unknown]
  - Leukopenia [Unknown]
  - Gastrointestinal haemorrhage [Unknown]
  - Liver function test abnormal [Unknown]
  - Hyperbilirubinaemia [Unknown]
